FAERS Safety Report 15196161 (Version 2)
Quarter: 2018Q3

REPORT INFORMATION
  Report Type: Spontaneous
  Country: US (occurrence: US)
  Receive Date: 20180725
  Receipt Date: 20180727
  Transmission Date: 20181010
  Serious: No
  Sender: FDA-Public Use
  Company Number: US-PFIZER INC-2018298012

PATIENT
  Age: 54 Year
  Sex: Male

DRUGS (1)
  1. INLYTA [Suspect]
     Active Substance: AXITINIB
     Indication: RENAL CELL CARCINOMA
     Dosage: UNK
     Dates: start: 2016

REACTIONS (3)
  - Diarrhoea [Unknown]
  - Neoplasm progression [Unknown]
  - Abdominal pain upper [Unknown]
